FAERS Safety Report 4606575-1 (Version None)
Quarter: 2005Q2

REPORT INFORMATION
  Report Type: 
  Country: None (occurrence: None)
  Receive Date: 20050223
  Receipt Date: 20040715
  Transmission Date: 20051028
  Serious: Yes (Life-Threatening, Hospitalization, Other)
  Sender: FDA-Public Use
  Company Number: WAES 0407USA01351

PATIENT
  Age: 60 Year
  Sex: Male
  Weight: 81.1939 kg

DRUGS (8)
  1. ZOCOR [Suspect]
     Indication: HYPERCHOLESTEROLAEMIA
     Dosage: 10 MG/DAILY/PO;  20 MG/DAILY/PO;  10 MG/DAILY/PO
     Route: 048
     Dates: start: 19970101, end: 20040601
  2. ZOCOR [Suspect]
     Indication: HYPERCHOLESTEROLAEMIA
     Dosage: 10 MG/DAILY/PO;  20 MG/DAILY/PO;  10 MG/DAILY/PO
     Route: 048
     Dates: start: 20030228, end: 20040712
  3. ZOCOR [Suspect]
     Indication: HYPERCHOLESTEROLAEMIA
     Dosage: 10 MG/DAILY/PO;  20 MG/DAILY/PO;  10 MG/DAILY/PO
     Route: 048
     Dates: start: 20040601, end: 20040712
  4. ALTACE [Concomitant]
  5. FOLTX [Concomitant]
  6. VIAGRA [Concomitant]
  7. ASPIRIN [Concomitant]
  8. CYANOCOBALAMIN (+) PYRIDOXINE [Concomitant]

REACTIONS (1)
  - RHABDOMYOLYSIS [None]
